FAERS Safety Report 17009650 (Version 1)
Quarter: 2019Q4

REPORT INFORMATION
  Report Type: Spontaneous
  Country: US (occurrence: US)
  Receive Date: 20190930
  Receipt Date: 20190930
  Transmission Date: 20200122
  Serious: No
  Sender: FDA-Public Use
  Company Number: None

PATIENT
  Age: 60 Year
  Sex: Female

DRUGS (1)
  1. ENBREL [Suspect]
     Active Substance: ETANERCEPT
     Route: 058
     Dates: start: 20190805, end: 20190827

REACTIONS (6)
  - Swelling [None]
  - Erythema [None]
  - Pain in extremity [None]
  - Pharyngeal erythema [None]
  - Pharyngeal ulceration [None]
  - Pharyngeal swelling [None]

NARRATIVE: CASE EVENT DATE: 20190930
